FAERS Safety Report 6054817-0 (Version None)
Quarter: 2009Q1

REPORT INFORMATION
  Report Type: 
  Country: None (occurrence: None)
  Receive Date: 20090128
  Receipt Date: 20090122
  Transmission Date: 20090719
  Serious: Yes (Other)
  Sender: FDA-Public Use
  Company Number: US-BIOGENIDEC-2009BI002543

PATIENT
  Age: 52 Year
  Sex: Female
  Weight: 61 kg

DRUGS (2)
  1. TYSABRI [Suspect]
     Indication: MULTIPLE SCLEROSIS
     Route: 042
     Dates: start: 20070212
  2. LAMICTAL [Concomitant]
     Indication: CONVULSION

REACTIONS (7)
  - ALOPECIA [None]
  - CENTRAL NERVOUS SYSTEM LESION [None]
  - CONVULSION [None]
  - MULTIPLE SCLEROSIS RELAPSE [None]
  - NAUSEA [None]
  - RESPIRATORY TRACT INFECTION [None]
  - VAGINAL INFECTION [None]
